FAERS Safety Report 4363137-1 (Version None)
Quarter: 2004Q2

REPORT INFORMATION
  Report Type: 
  Country: None (occurrence: None)
  Receive Date: 20040517
  Receipt Date: 20040217
  Transmission Date: 20050107
  Serious: No
  Sender: FDA-Public Use
  Company Number: S04-USA-00930-01

PATIENT
  Age: 79 Year
  Sex: Female

DRUGS (6)
  1. NAMENDA [Suspect]
     Indication: DEMENTIA ALZHEIMER'S TYPE
     Dosage: 5 MG QD PO
     Route: 048
     Dates: start: 20040106, end: 20040112
  2. NAMENDA [Suspect]
     Indication: DEMENTIA ALZHEIMER'S TYPE
     Dosage: 10 MG QD PO
     Route: 048
     Dates: start: 20040113, end: 20040119
  3. NAMENDA [Suspect]
     Indication: DEMENTIA ALZHEIMER'S TYPE
     Dosage: 15 MG QD PO
     Route: 048
     Dates: start: 20040120, end: 20040210
  4. ARICEPT [Concomitant]
  5. LEVOTHROID [Concomitant]
  6. EVISTA [Concomitant]

REACTIONS (2)
  - CONFUSIONAL STATE [None]
  - DECREASED APPETITE [None]
